FAERS Safety Report 13205162 (Version 1)
Quarter: 2017Q1

REPORT INFORMATION
  Report Type: Spontaneous
  Country: US (occurrence: US)
  Receive Date: 20170208
  Receipt Date: 20170208
  Transmission Date: 20170428
  Serious: Yes (Other)
  Sender: FDA-Public Use
  Company Number: None

PATIENT
  Age: 83 Year
  Sex: Female
  Weight: 58.8 kg

DRUGS (1)
  1. RITUXIMAB 500MG GENETECH [Suspect]
     Active Substance: RITUXIMAB
     Route: 042
     Dates: start: 20160126, end: 20170125

REACTIONS (1)
  - Throat irritation [None]

NARRATIVE: CASE EVENT DATE: 20170118
